FAERS Safety Report 9827470 (Version 1)
Quarter: 2013Q4

REPORT INFORMATION
  Report Type: Spontaneous
  Country: US (occurrence: None)
  Receive Date: 20131118
  Receipt Date: 20131118
  Transmission Date: 20140711
  Serious: Yes (Other)
  Sender: FDA-Public Use
  Company Number: 2013AP006989

PATIENT
  Age: 82 Year
  Sex: Male

DRUGS (5)
  1. OMEPRAZOLE DELAYED-RELEASE CAPSULES, USP [Suspect]
     Indication: HELICOBACTER INFECTION
  2. CLARITHROMYCIN TABLETS [Suspect]
     Indication: HELICOBACTER INFECTION
  3. AMOXICILLIN [Suspect]
     Indication: HELICOBACTER INFECTION
  4. INSULIN DETEMIR [Suspect]
     Indication: TYPE 2 DIABETES MELLITUS
  5. INSULIN ASPART [Concomitant]

REACTIONS (2)
  - Hypoglycaemia [None]
  - Drug interaction [None]
